FAERS Safety Report 16717745 (Version 6)
Quarter: 2019Q3

REPORT INFORMATION
  Report Type: Spontaneous
  Country: DE (occurrence: DE)
  Receive Date: 20190819
  Receipt Date: 20190909
  Transmission Date: 20191005
  Serious: Yes (Other)
  Sender: FDA-Public Use
  Company Number: PHHY2019DE190202

PATIENT
  Age: 27 Year
  Sex: Female

DRUGS (3)
  1. PREDNISOLONE. [Suspect]
     Active Substance: PREDNISOLONE
     Indication: PROPHYLAXIS
     Dosage: UNK
     Route: 062
  2. ANTITHYMOCYTE IMMUNOGLOBULIN (RABBIT) [Suspect]
     Active Substance: LAPINE T-LYMPHOCYTE IMMUNE GLOBULIN
     Indication: APLASTIC ANAEMIA
     Dosage: UNK
     Route: 065
  3. CICLOSPORIN [Suspect]
     Active Substance: CYCLOSPORINE
     Indication: APLASTIC ANAEMIA
     Dosage: UNK
     Route: 062

REACTIONS (11)
  - Eye pain [Recovered/Resolved]
  - Ciliary body disorder [Recovered/Resolved]
  - Retinal detachment [Recovered/Resolved]
  - Mydriasis [Recovered/Resolved]
  - Retinal deposits [Recovered/Resolved]
  - Product use in unapproved indication [Unknown]
  - Blindness [Recovered/Resolved]
  - Myopia [Recovered/Resolved]
  - Chorioretinal folds [Recovered/Resolved]
  - Glaucoma [Recovered/Resolved]
  - Intraocular pressure increased [Recovered/Resolved]
